FAERS Safety Report 5533350-6 (Version None)
Quarter: 2007Q4

REPORT INFORMATION
  Report Type: 
  Country: None (occurrence: None)
  Receive Date: 20071204
  Receipt Date: 20071127
  Transmission Date: 20080405
  Serious: Yes (Other)
  Sender: FDA-Public Use
  Company Number: US-JNJFOC-20071001848

PATIENT
  Sex: Male

DRUGS (13)
  1. RISPERDAL CONSTA [Suspect]
     Indication: PSYCHOTIC DISORDER
     Route: 030
  2. RISPERDAL [Concomitant]
     Route: 048
  3. COGENTIN [Concomitant]
     Route: 048
  4. TRAZODONE HCL [Concomitant]
  5. DEPAKOTE ER [Concomitant]
  6. ZOCOR [Concomitant]
  7. VIAGRA [Concomitant]
  8. IBUPROFEN [Concomitant]
  9. CLONIDINE [Concomitant]
  10. ASPIRIN [Concomitant]
  11. GLYBURIDE [Concomitant]
  12. LISINOPRIL [Concomitant]
  13. METFORMIN HCL [Concomitant]

REACTIONS (1)
  - INJECTION SITE CELLULITIS [None]
